FAERS Safety Report 19094666 (Version 3)
Quarter: 2021Q2

REPORT INFORMATION
  Report Type: Spontaneous
  Country: US (occurrence: US)
  Receive Date: 20210406
  Receipt Date: 20210507
  Transmission Date: 20210717
  Serious: Yes (Hospitalization)
  Sender: FDA-Public Use
  Company Number: US-BEH-2021130065

PATIENT
  Age: 66 Year
  Sex: Male

DRUGS (9)
  1. BUDESONIDE;FORMOTEROL [Concomitant]
     Active Substance: BUDESONIDE\FORMOTEROL
     Route: 065
  2. TAMSULOSIN [Concomitant]
     Active Substance: TAMSULOSIN
     Route: 065
  3. GABAPENTIN. [Concomitant]
     Active Substance: GABAPENTIN
     Route: 065
  4. PRIVIGEN [Suspect]
     Active Substance: HUMAN IMMUNOGLOBULIN G
     Indication: CHRONIC INFLAMMATORY DEMYELINATING POLYRADICULONEUROPATHY
     Dosage: 80 GRAM, QOW
     Route: 042
     Dates: start: 20210203
  5. INCRUSE ELLIPTA [Concomitant]
     Active Substance: UMECLIDINIUM BROMIDE
     Route: 065
  6. FINASTERIDE. [Concomitant]
     Active Substance: FINASTERIDE
     Route: 065
  7. TEMOZOLOMIDE. [Concomitant]
     Active Substance: TEMOZOLOMIDE
     Route: 065
  8. CELLCEPT [Concomitant]
     Active Substance: MYCOPHENOLATE MOFETIL\MYCOPHENOLATE MOFETIL HYDROCHLORIDE
     Route: 065
  9. FLOMAX [MORNIFLUMATE] [Concomitant]
     Active Substance: MORNIFLUMATE
     Route: 065

REACTIONS (1)
  - Lymphoma [Not Recovered/Not Resolved]

NARRATIVE: CASE EVENT DATE: 202103
